FAERS Safety Report 6703499-0 (Version None)
Quarter: 2010Q2

REPORT INFORMATION
  Report Type: 
  Country: None (occurrence: None)
  Receive Date: 20100430
  Receipt Date: 20100416
  Transmission Date: 20101027
  Serious: Yes (Other)
  Sender: FDA-Public Use
  Company Number: PHEH2010US03408

PATIENT
  Sex: Male

DRUGS (1)
  1. TEGRETOL [Suspect]
     Indication: CONVULSION
     Dosage: UNK
     Dates: start: 20080101

REACTIONS (16)
  - BLOOD GLUCOSE INCREASED [None]
  - CHEST PAIN [None]
  - CHILLS [None]
  - DRY MOUTH [None]
  - EOSINOPHIL COUNT INCREASED [None]
  - EYE SWELLING [None]
  - FATIGUE [None]
  - HEADACHE [None]
  - HYPERSENSITIVITY [None]
  - JOINT SWELLING [None]
  - MYALGIA [None]
  - OEDEMA PERIPHERAL [None]
  - PYREXIA [None]
  - RASH GENERALISED [None]
  - RESPIRATORY TRACT INFECTION [None]
  - URTICARIA [None]
